FAERS Safety Report 16748091 (Version 2)
Quarter: 2020Q1

REPORT INFORMATION
  Report Type: Spontaneous
  Country: AU (occurrence: AU)
  Receive Date: 20190827
  Receipt Date: 20200321
  Transmission Date: 20200409
  Serious: Yes (Other)
  Sender: FDA-Public Use
  Company Number: AU-GILEAD-2019-0425366

PATIENT
  Age: 65 Year
  Sex: Male

DRUGS (2)
  1. GENVOYA [Suspect]
     Active Substance: COBICISTAT\ELVITEGRAVIR\EMTRICITABINE\TENOFOVIR ALAFENAMIDE FUMARATE
     Indication: HIV INFECTION
     Dosage: UNK
     Route: 065
  2. FLUTICASONE FUROATE;VILANTEROL [Interacting]
     Active Substance: FLUTICASONE FUROATE\VILANTEROL TRIFENATATE
     Indication: CHRONIC OBSTRUCTIVE PULMONARY DISEASE
     Route: 055

REACTIONS (9)
  - Weight increased [Unknown]
  - Cushing^s syndrome [Unknown]
  - Fatigue [Unknown]
  - Lipohypertrophy [Unknown]
  - Myopathy [Unknown]
  - Cortisol decreased [Unknown]
  - Swelling face [Unknown]
  - Drug interaction [Unknown]
  - Mood altered [Unknown]
